FAERS Safety Report 6896460-7 (Version None)
Quarter: 2010Q3

REPORT INFORMATION
  Report Type: 
  Country: None (occurrence: None)
  Receive Date: 20100802
  Receipt Date: 20090303
  Transmission Date: 20110219
  Serious: No
  Sender: FDA-Public Use
  Company Number: US-PFIZER INC-2009151665

PATIENT
  Sex: Female

DRUGS (2)
  1. NORVASC [Suspect]
     Indication: CORONARY ARTERY DISEASE
  2. NORVASC [Suspect]
     Indication: HYPERTENSION

REACTIONS (2)
  - JOINT SWELLING [None]
  - RHEUMATOID ARTHRITIS [None]
